FAERS Safety Report 22102020 (Version 1)
Quarter: 2023Q1

REPORT INFORMATION
  Report Type: Spontaneous
  Country: US (occurrence: None)
  Receive Date: 20230315
  Receipt Date: 20230315
  Transmission Date: 20230417
  Serious: No
  Sender: FDA-Public Use
  Company Number: None

PATIENT
  Age: 35 Year
  Sex: Male
  Weight: 72 kg

DRUGS (1)
  1. DEXTROAMPHET SACCHARAT, AMPHET ASPARTATE, DEXTROAMPHET SULFATE AND AMP [Suspect]
     Active Substance: AMPHETAMINE ASPARTATE\AMPHETAMINE SULFATE\DEXTROAMPHETAMINE SACCHARATE\DEXTROAMPHETAMINE SULFATE
     Indication: Attention deficit hyperactivity disorder
     Dosage: 60 TABLETS ?
     Dates: start: 20230307, end: 20230315

REACTIONS (8)
  - Product substitution issue [None]
  - Drug effect less than expected [None]
  - Anxiety [None]
  - Irritability [None]
  - Decreased appetite [None]
  - Heart rate increased [None]
  - Peripheral coldness [None]
  - Insomnia [None]
